FAERS Safety Report 25893722 (Version 1)
Quarter: 2025Q4

REPORT INFORMATION
  Report Type: Spontaneous
  Country: US (occurrence: US)
  Receive Date: 20251008
  Receipt Date: 20251008
  Transmission Date: 20260118
  Serious: No
  Sender: SANDOZ
  Company Number: US-SANDOZ-SDZ2025US072894

PATIENT
  Age: 15 Year
  Sex: Male

DRUGS (2)
  1. OMNITROPE [Suspect]
     Active Substance: SOMATROPIN
     Indication: Product used for unknown indication
     Dosage: OMNITROPE PEN 10 (OMNITROPE  10MG/1.5 ML 1.5ML 1LICA USSTRENGTH  OF MEDICATION: 10MG/1.5 ML 1.5ML  1
     Route: 065
  2. OMNITROPE [Suspect]
     Active Substance: SOMATROPIN
     Indication: Product used for unknown indication
     Dosage: OMNITROPE PEN 10 (OMNITROPE  10MG/1.5 ML 1.5ML 1LICA USSTRENGTH  OF MEDICATION: 10MG/1.5 ML 1.5ML  1
     Route: 065

REACTIONS (2)
  - Incorrect dose administered by device [Unknown]
  - Device defective [Unknown]

NARRATIVE: CASE EVENT DATE: 20250929
